FAERS Safety Report 17183429 (Version 1)
Quarter: 2019Q4

REPORT INFORMATION
  Report Type: Spontaneous
  Country: US (occurrence: US)
  Receive Date: 20191220
  Receipt Date: 20191220
  Transmission Date: 20200122
  Serious: No
  Sender: FDA-Public Use
  Company Number: NVSC2019US074430

PATIENT
  Age: 6 Year
  Sex: Female

DRUGS (1)
  1. PREDNISOLONE. [Suspect]
     Active Substance: PREDNISOLONE
     Indication: GRANULOMA SKIN
     Route: 065

REACTIONS (3)
  - Product use in unapproved indication [Unknown]
  - Granuloma skin [Unknown]
  - Condition aggravated [Unknown]
